FAERS Safety Report 8762612 (Version 2)
Quarter: 2012Q4

REPORT INFORMATION
  Report Type: 
  Country: AU (occurrence: AU)
  Receive Date: 20120830
  Receipt Date: 20120924
  Transmission Date: 20130627
  Serious: Yes (Other)
  Sender: FDA-Public Use
  Company Number: AU-ROCHE-1110034

PATIENT
  Sex: Female

DRUGS (2)
  1. LUCENTIS [Suspect]
     Indication: AGE-RELATED MACULAR DEGENERATION
     Route: 050
     Dates: start: 201111
  2. LUCENTIS [Suspect]
     Route: 050
     Dates: end: 201205

REACTIONS (2)
  - Age-related macular degeneration [Not Recovered/Not Resolved]
  - Therapeutic response decreased [Unknown]
